FAERS Safety Report 8463435-6 (Version None)
Quarter: 2012Q2

REPORT INFORMATION
  Report Type: 
  Country: None (occurrence: None)
  Receive Date: 20120625
  Receipt Date: 20120620
  Transmission Date: 20120825
  Serious: Yes (Hospitalization, Other)
  Sender: FDA-Public Use
  Company Number: US-MERCK-1203USA01937

PATIENT
  Age: 71 Year
  Sex: Female

DRUGS (4)
  1. VITAMINS (UNSPECIFIED) [Concomitant]
     Indication: ROUTINE HEALTH MAINTENANCE
     Route: 065
  2. ALENDRONATE SODIUM [Suspect]
     Route: 048
     Dates: start: 20080729, end: 20100901
  3. ALENDRONATE SODIUM [Suspect]
     Indication: OSTEOPOROSIS
     Route: 048
     Dates: start: 20080422
  4. FOSAMAX [Suspect]
     Indication: OSTEOPOROSIS
     Route: 048
     Dates: start: 20080101

REACTIONS (25)
  - FEMUR FRACTURE [None]
  - OBSTRUCTION [None]
  - HAEMORRHAGIC ANAEMIA [None]
  - OEDEMA [None]
  - PAIN [None]
  - OSTEOPENIA [None]
  - DEPRESSION [None]
  - ANKLE FRACTURE [None]
  - OSTEOARTHRITIS [None]
  - GAIT DISTURBANCE [None]
  - OSTEOPOROTIC FRACTURE [None]
  - JAW FRACTURE [None]
  - IATROGENIC INJURY [None]
  - RHEUMATOID ARTHRITIS [None]
  - FOOT FRACTURE [None]
  - TOOTH DISORDER [None]
  - IMPAIRED HEALING [None]
  - SCIATICA [None]
  - ANXIETY [None]
  - ROTATOR CUFF SYNDROME [None]
  - ARTHRITIS [None]
  - RADICULAR PAIN [None]
  - OSTEOMYELITIS [None]
  - UMBILICAL HERNIA [None]
  - FALL [None]
